FAERS Safety Report 10160180 (Version 5)
Quarter: 2014Q3

REPORT INFORMATION
  Report Type: Report from Study
  Country: US (occurrence: US)
  Receive Date: 20140508
  Receipt Date: 20140926
  Transmission Date: 20150326
  Serious: Yes (Hospitalization, Disabling)
  Sender: FDA-Public Use
  Company Number: US-ACTELION-A-US2014-94554

PATIENT
  Age: 59 Year
  Sex: Male

DRUGS (4)
  1. TYVASO [Concomitant]
     Active Substance: TREPROSTINIL
     Dosage: 9 BREATHS/MIN, QID
     Route: 055
     Dates: start: 201305
  2. ADCIRCA [Concomitant]
     Active Substance: TADALAFIL
     Dosage: 20 MG, QD
     Dates: start: 20140624
  3. MACITENTAN [Suspect]
     Active Substance: MACITENTAN
     Indication: PORTOPULMONARY HYPERTENSION
     Dosage: 10 MG, QD
     Route: 048
     Dates: start: 20131216
  4. MACITENTAN [Suspect]
     Active Substance: MACITENTAN
     Dosage: 5 UNK, UNK
     Route: 048

REACTIONS (9)
  - Haemorrhoids [Unknown]
  - Anaemia [Unknown]
  - Headache [Recovering/Resolving]
  - Abdominal distension [Recovering/Resolving]
  - Myalgia [Recovering/Resolving]
  - Coronary artery disease [Recovered/Resolved]
  - Stent placement [Recovered/Resolved]
  - Blood iron decreased [Recovering/Resolving]
  - Fluid retention [Unknown]

NARRATIVE: CASE EVENT DATE: 201401
